FAERS Safety Report 18633474 (Version 14)
Quarter: 2021Q2

REPORT INFORMATION
  Report Type: Spontaneous
  Country: US (occurrence: US)
  Receive Date: 20201218
  Receipt Date: 20210528
  Transmission Date: 20210717
  Serious: No
  Sender: FDA-Public Use
  Company Number: US-PFIZER INC-2020498997

PATIENT
  Age: 73 Year
  Sex: Female
  Weight: 64.41 kg

DRUGS (3)
  1. PREMARIN [Suspect]
     Active Substance: ESTROGENS, CONJUGATED
     Indication: VULVOVAGINAL BURNING SENSATION
     Dosage: 0.625MG, TWICE A WEEK (0.625MG VAGINAL CREAM, INTO LITTLE BIT TWICE WEEKLY)
     Route: 067
  2. PREMARIN [Suspect]
     Active Substance: ESTROGENS, CONJUGATED
     Dosage: PEA SIZED AMOUNT AROUND INTROITUS 2?3 TIMES PER WEEK )
  3. PREMARIN [Suspect]
     Active Substance: ESTROGENS, CONJUGATED
     Indication: VULVOVAGINAL BURNING SENSATION
     Dosage: 0.3 MG, 1X/DAY

REACTIONS (3)
  - Off label use [Unknown]
  - Product use issue [Unknown]
  - Drug ineffective [Unknown]
